FAERS Safety Report 6356106-3 (Version None)
Quarter: 2009Q3

REPORT INFORMATION
  Report Type: 
  Country: None (occurrence: None)
  Receive Date: 20090915
  Receipt Date: 20090713
  Transmission Date: 20100115
  Serious: No
  Sender: FDA-Public Use
  Company Number: US-BAYER-200922688NA

PATIENT
  Age: 46 Year
  Sex: Female
  Weight: 73 kg

DRUGS (2)
  1. CLIMARA PRO [Suspect]
     Indication: HORMONE REPLACEMENT THERAPY
     Route: 062
     Dates: start: 20070601
  2. SYNTHROID [Concomitant]

REACTIONS (2)
  - APPLICATION SITE RASH [None]
  - NO ADVERSE EVENT [None]
